FAERS Safety Report 19806961 (Version 7)
Quarter: 2021Q4

REPORT INFORMATION
  Report Type: Report from Study
  Country: IE (occurrence: IE)
  Receive Date: 20210908
  Receipt Date: 20211101
  Transmission Date: 20220304
  Serious: Yes (Disabling, Other)
  Sender: FDA-Public Use
  Company Number: IE-DSJP-DSU-2021-129138

PATIENT
  Age: 59 Year
  Sex: Female
  Weight: 67 kg

DRUGS (3)
  1. ENHERTU [Suspect]
     Active Substance: FAM-TRASTUZUMAB DERUXTECAN-NXKI
     Indication: HER2 positive breast cancer
     Dosage: 5.4 MG/KG, ONCE EVERY 3 WK (CYCLE 1)
     Route: 042
     Dates: start: 20210813, end: 20210813
  2. ENHERTU [Suspect]
     Active Substance: FAM-TRASTUZUMAB DERUXTECAN-NXKI
     Indication: Breast cancer metastatic
     Dosage: 5.4 MG/KG, ONCE EVERY 3 WK (CYCLE 2)
     Route: 042
     Dates: start: 20210903, end: 20210903
  3. CYCLIZINE [Concomitant]
     Active Substance: CYCLIZINE
     Indication: Nausea
     Dosage: 50 MG TAB TDS
     Route: 048
     Dates: start: 20210813

REACTIONS (4)
  - Fatigue [Not Recovered/Not Resolved]
  - Nausea [Not Recovered/Not Resolved]
  - Weight decreased [Not Recovered/Not Resolved]
  - Ejection fraction decreased [Not Recovered/Not Resolved]

NARRATIVE: CASE EVENT DATE: 20210815
